FAERS Safety Report 5659443-0 (Version None)
Quarter: 2008Q1

REPORT INFORMATION
  Report Type: 
  Country: None (occurrence: None)
  Receive Date: 20080307
  Receipt Date: 20080307
  Transmission Date: 20080703
  Serious: No
  Sender: FDA-Public Use
  Company Number: None

PATIENT
  Age: 63 Year
  Sex: Female
  Weight: 62.1428 kg

DRUGS (2)
  1. TOPROL-XL [Suspect]
     Indication: AUTONOMIC NEUROPATHY
     Dosage: 50 MG 2 DAILY MOUTH
     Route: 048
     Dates: start: 20050101, end: 20060101
  2. TOPROL-XL [Suspect]
     Indication: HYPERTENSION
     Dosage: 50 MG 2 DAILY MOUTH
     Route: 048
     Dates: start: 20050101, end: 20060101

REACTIONS (1)
  - HALLUCINATION, AUDITORY [None]
